FAERS Safety Report 16521926 (Version 1)
Quarter: 2019Q3

REPORT INFORMATION
  Report Type: Report from Study
  Country: US (occurrence: US)
  Receive Date: 20190702
  Receipt Date: 20190702
  Transmission Date: 20191004
  Serious: Yes (Hospitalization)
  Sender: FDA-Public Use
  Company Number: US-ALEXION PHARMACEUTICALS INC.-A201909658

PATIENT
  Sex: Female

DRUGS (1)
  1. SOLIRIS [Suspect]
     Active Substance: ECULIZUMAB
     Indication: PAROXYSMAL NOCTURNAL HAEMOGLOBINURIA
     Dosage: 900 MG, Q2W
     Route: 042
     Dates: end: 20190619

REACTIONS (7)
  - Fall [Recovered/Resolved]
  - Limb discomfort [Unknown]
  - Head injury [Recovered/Resolved]
  - Malaise [Recovered/Resolved]
  - Injury [Recovered/Resolved]
  - Abnormal sensation in eye [Not Recovered/Not Resolved]
  - Dyskinesia [Unknown]
